FAERS Safety Report 24714325 (Version 1)
Quarter: 2024Q4

REPORT INFORMATION
  Report Type: Spontaneous
  Country: US (occurrence: US)
  Receive Date: 20241209
  Receipt Date: 20241209
  Transmission Date: 20250114
  Serious: No
  Sender: ELI LILLY AND COMPANY
  Company Number: US-ELI_LILLY_AND_COMPANY-US202412005763

PATIENT
  Sex: Male

DRUGS (2)
  1. FORTEO [Suspect]
     Active Substance: TERIPARATIDE
     Indication: Spinal fracture
     Dosage: UNK UNK, UNKNOWN
     Route: 065
     Dates: start: 202409
  2. FORTEO [Suspect]
     Active Substance: TERIPARATIDE
     Indication: Back pain

REACTIONS (3)
  - Tonsillolith [Unknown]
  - Off label use [Unknown]
  - Hypercalciuria [Unknown]

NARRATIVE: CASE EVENT DATE: 20240901
